FAERS Safety Report 5312991-5 (Version None)
Quarter: 2007Q2

REPORT INFORMATION
  Report Type: 
  Country: None (occurrence: None)
  Receive Date: 20070430
  Receipt Date: 20070418
  Transmission Date: 20071010
  Serious: Yes (Other)
  Sender: FDA-Public Use
  Company Number: GB-PFIZER INC-2006149348

PATIENT
  Age: 50 Year
  Sex: Female
  Weight: 65.8 kg

DRUGS (1)
  1. DOXEPIN HCL [Suspect]
     Indication: DEPRESSION

REACTIONS (2)
  - FEELING ABNORMAL [None]
  - SUICIDAL BEHAVIOUR [None]
